FAERS Safety Report 25142143 (Version 4)
Quarter: 2025Q2

REPORT INFORMATION
  Report Type: Spontaneous
  Country: US (occurrence: US)
  Receive Date: 20250331
  Receipt Date: 20250528
  Transmission Date: 20250717
  Serious: No
  Sender: PFIZER
  Company Number: US-PFIZER INC-202500067274

PATIENT
  Age: 76 Year
  Sex: Male
  Weight: 82.993 kg

DRUGS (21)
  1. BOSULIF [Suspect]
     Active Substance: BOSUTINIB MONOHYDRATE
     Indication: Chronic myeloid leukaemia
     Dosage: 400 MG, ALTERNATE DAY (EVERY OTHER DAY)
     Route: 048
  2. BOSULIF [Suspect]
     Active Substance: BOSUTINIB MONOHYDRATE
     Dosage: 400 MG, DAILY (1 TABLET)
     Route: 048
  3. BOSULIF [Suspect]
     Active Substance: BOSUTINIB MONOHYDRATE
     Dosage: 1 DF, ALTERNATE DAY (EVERY OTHER DAY)
     Dates: start: 20250326
  4. REMODULIN [Suspect]
     Active Substance: TREPROSTINIL
     Indication: Pulmonary arterial hypertension
     Route: 041
     Dates: start: 20210629
  5. VITAMIN C [Concomitant]
     Active Substance: ASCORBIC ACID
  6. MELATONIN [Concomitant]
     Active Substance: MELATONIN
  7. LASIX [Concomitant]
     Active Substance: FUROSEMIDE
  8. OFEV [Concomitant]
     Active Substance: NINTEDANIB
  9. ASPIRIN [Concomitant]
     Active Substance: ASPIRIN
  10. POTASSIUM CHLORIDE [Concomitant]
     Active Substance: POTASSIUM CHLORIDE
  11. LOPERAMIDE HYDROCHLORIDE [Concomitant]
     Active Substance: LOPERAMIDE HYDROCHLORIDE
  12. SILDENAFIL CITRATE [Concomitant]
     Active Substance: SILDENAFIL CITRATE
  13. FLONASE ALLERGY RELIEF [Concomitant]
     Active Substance: FLUTICASONE PROPIONATE
  14. VITAMINS [Concomitant]
     Active Substance: VITAMINS
  15. OPSUMIT [Concomitant]
     Active Substance: MACITENTAN
  16. OXYGEN [Concomitant]
     Active Substance: OXYGEN
  17. ZINC [Concomitant]
     Active Substance: ZINC
  18. SPIRONOLACTONE [Concomitant]
     Active Substance: SPIRONOLACTONE
  19. GABAPENTIN [Concomitant]
     Active Substance: GABAPENTIN
  20. VITAMIN D3 [Concomitant]
     Active Substance: CHOLECALCIFEROL
  21. CETIRIZINE HCL [Concomitant]
     Active Substance: CETIRIZINE HYDROCHLORIDE

REACTIONS (5)
  - Dyspnoea [Not Recovered/Not Resolved]
  - Malaise [Not Recovered/Not Resolved]
  - Diarrhoea [Unknown]
  - Nausea [Not Recovered/Not Resolved]
  - Off label use [Unknown]
